FAERS Safety Report 13300108 (Version 1)
Quarter: 2017Q1

REPORT INFORMATION
  Report Type: Spontaneous
  Country: FR (occurrence: FR)
  Receive Date: 20170306
  Receipt Date: 20170306
  Transmission Date: 20170428
  Serious: Yes (Hospitalization)
  Sender: FDA-Public Use
  Company Number: FR-ROCHE-1901219

PATIENT
  Age: 71 Year
  Sex: Male

DRUGS (12)
  1. EUPANTOL [Concomitant]
     Active Substance: PANTOPRAZOLE SODIUM
     Dosage: EUPANTOL 40 MG
     Route: 065
  2. NEORAL [Suspect]
     Active Substance: CYCLOSPORINE
     Indication: PROPHYLAXIS AGAINST TRANSPLANT REJECTION
     Route: 048
     Dates: start: 20161211
  3. CELLCEPT [Suspect]
     Active Substance: MYCOPHENOLATE MOFETIL\MYCOPHENOLATE MOFETIL HYDROCHLORIDE
     Dosage: CELLCEPT 500 MG
     Route: 048
  4. NEORAL [Suspect]
     Active Substance: CYCLOSPORINE
     Route: 048
  5. CORTANCYL [Suspect]
     Active Substance: PREDNISONE
     Indication: PROPHYLAXIS AGAINST TRANSPLANT REJECTION
     Route: 048
     Dates: start: 20161211, end: 20170109
  6. CELLCEPT [Suspect]
     Active Substance: MYCOPHENOLATE MOFETIL\MYCOPHENOLATE MOFETIL HYDROCHLORIDE
     Indication: PROPHYLAXIS AGAINST TRANSPLANT REJECTION
     Dosage: CELLCEPT 500 MG
     Route: 048
     Dates: start: 20161211
  7. SELOKEN [Concomitant]
     Active Substance: METOPROLOL
  8. ROVAMYCIN [Concomitant]
     Active Substance: SPIRAMYCIN
  9. CYMEVAN [Concomitant]
     Active Substance: GANCICLOVIR
  10. BACTRIM [Concomitant]
     Active Substance: SULFAMETHOXAZOLE\TRIMETHOPRIM
     Route: 065
  11. CEFOTAXIME [Concomitant]
     Active Substance: CEFOTAXIME SODIUM
  12. ROCEPHINE [Concomitant]
     Active Substance: CEFTRIAXONE SODIUM
     Route: 065

REACTIONS (2)
  - Pulmonary embolism [Recovered/Resolved]
  - Cytomegalovirus infection [Recovered/Resolved]

NARRATIVE: CASE EVENT DATE: 20170110
